FAERS Safety Report 16802797 (Version 1)
Quarter: 2019Q3

REPORT INFORMATION
  Report Type: Other
  Country: RO (occurrence: RO)
  Receive Date: 20190912
  Receipt Date: 20190912
  Transmission Date: 20191005
  Serious: Yes (Other)
  Sender: FDA-Public Use
  Company Number: RO-CELLTRION INC.-2019RO020265

PATIENT

DRUGS (9)
  1. ASPENTER [Concomitant]
     Active Substance: ASPIRIN
  2. SELENIUM [Concomitant]
     Active Substance: SELENIUM
  3. DETRALEX [Concomitant]
     Active Substance: DIOSMIN\HESPERIDIN
  4. DEBRIDAT [TRIMEBUTINE] [Concomitant]
     Active Substance: TRIMEBUTINE
  5. TERTENSIF [Concomitant]
     Active Substance: INDAPAMIDE
  6. OMEZ [OMEPRAZOLE] [Concomitant]
     Active Substance: OMEPRAZOLE
  7. RITUXIMAB (UNKNOWN) [Suspect]
     Active Substance: RITUXIMAB
     Indication: RHEUMATOID ARTHRITIS
     Dosage: 500 MG
     Route: 042
     Dates: start: 200904
  8. ARTHROTEC [Concomitant]
     Active Substance: DICLOFENAC SODIUM\MISOPROSTOL
  9. METOPROLOL. [Concomitant]
     Active Substance: METOPROLOL

REACTIONS (10)
  - Road traffic accident [Unknown]
  - Renal pain [Not Recovered/Not Resolved]
  - Gastric ulcer [Not Recovered/Not Resolved]
  - Pneumonia [Recovered/Resolved]
  - Spinal pain [Not Recovered/Not Resolved]
  - Calcium deficiency [Not Recovered/Not Resolved]
  - Pain in extremity [Not Recovered/Not Resolved]
  - Headache [Not Recovered/Not Resolved]
  - Interstitial lung disease [Not Recovered/Not Resolved]
  - Underdose [Unknown]

NARRATIVE: CASE EVENT DATE: 200904
